FAERS Safety Report 5597725-1 (Version None)
Quarter: 2008Q1

REPORT INFORMATION
  Report Type: 
  Country: None (occurrence: None)
  Receive Date: 20080121
  Receipt Date: 20080109
  Transmission Date: 20080703
  Serious: Yes (Other)
  Sender: FDA-Public Use
  Company Number: DE-ELI_LILLY_AND_COMPANY-DE200801002359

PATIENT
  Sex: Female

DRUGS (2)
  1. BERLINSULIN NPH [Suspect]
     Indication: GESTATIONAL DIABETES
     Dosage: 21 IU, UNKNOWN
     Route: 058
     Dates: start: 20071106, end: 20071106
  2. BERLINSULIN H NORMAL [Concomitant]
     Indication: GESTATIONAL DIABETES
     Dosage: 8 IU (3 IU / 2 IU / 3 IU), DAILY (1/D)
     Route: 058
     Dates: start: 20071029

REACTIONS (2)
  - DRUG EXPOSURE DURING PREGNANCY [None]
  - LARYNGEAL OEDEMA [None]
